FAERS Safety Report 7267187-7 (Version None)
Quarter: 2011Q1

REPORT INFORMATION
  Report Type: 
  Country: None (occurrence: None)
  Receive Date: 20110201
  Receipt Date: 20110126
  Transmission Date: 20110831
  Serious: Yes (Death, Other)
  Sender: FDA-Public Use
  Company Number: JP-CELGENEUS-087-21880-11011203

PATIENT
  Sex: Male

DRUGS (6)
  1. LENADEX [Suspect]
     Route: 048
     Dates: start: 20101103, end: 20101106
  2. REVLIMID [Suspect]
     Indication: MULTIPLE MYELOMA
     Route: 048
     Dates: start: 20101018, end: 20101107
  3. LENADEX [Suspect]
     Route: 048
     Dates: start: 20101026, end: 20101029
  4. REVLIMID [Suspect]
     Route: 048
     Dates: start: 20100101, end: 20101203
  5. LENADEX [Suspect]
     Indication: MULTIPLE MYELOMA
     Route: 048
     Dates: start: 20101018, end: 20101021
  6. LENADEX [Suspect]
     Route: 048
     Dates: start: 20100101

REACTIONS (3)
  - ENTEROCOLITIS INFECTIOUS [None]
  - INFECTION [None]
  - NEUTROPENIA [None]
